FAERS Safety Report 7323428-9 (Version None)
Quarter: 2011Q1

REPORT INFORMATION
  Report Type: 
  Country: None (occurrence: None)
  Receive Date: 20110217
  Receipt Date: 20110204
  Transmission Date: 20110831
  Serious: Yes (Other)
  Sender: FDA-Public Use
  Company Number: 2010-4452

PATIENT
  Sex: Male

DRUGS (1)
  1. DYSLOR (DYSPORT) (BOTULINUM TOXIN TYPE A)(BOTULINUM TOXTN TYPE A) [Suspect]
     Indication: SKIN COSMETIC PROCEDURE
     Dosage: 167 UNITS (167 UNITS,SINGLE CYCLE),SUBCUTANEOUS
     Route: 058

REACTIONS (3)
  - PRODUCT QUALITY ISSUE [None]
  - EYELID PTOSIS [None]
  - HYPERSENSITIVITY [None]
